FAERS Safety Report 7616838-3 (Version None)
Quarter: 2011Q3

REPORT INFORMATION
  Report Type: 
  Country: None (occurrence: None)
  Receive Date: 20110718
  Receipt Date: 20110705
  Transmission Date: 20111222
  Serious: No
  Sender: FDA-Public Use
  Company Number: US-BIOGENIDEC-2011BI022322

PATIENT
  Age: 23 Year
  Sex: Female

DRUGS (1)
  1. TYSABRI [Suspect]
     Indication: MULTIPLE SCLEROSIS
     Route: 042
     Dates: start: 20100831

REACTIONS (6)
  - EYE SWELLING [None]
  - ABDOMINAL PAIN UPPER [None]
  - RASH GENERALISED [None]
  - RASH MACULAR [None]
  - RASH [None]
  - RASH PRURITIC [None]
